FAERS Safety Report 18523715 (Version 2)
Quarter: 2022Q4

REPORT INFORMATION
  Report Type: Report from Study
  Country: CO (occurrence: CO)
  Receive Date: 20201119
  Receipt Date: 20221209
  Transmission Date: 20230112
  Serious: Yes (Other)
  Sender: FDA-Public Use
  Company Number: CO-NOVARTISPH-PHHY2018CO062517

PATIENT
  Age: 40 Year
  Sex: Female
  Weight: 69 kg

DRUGS (3)
  1. XOLAIR [Suspect]
     Active Substance: OMALIZUMAB
     Indication: Chronic spontaneous urticaria
     Dosage: 300 MG, QMO
     Route: 058
     Dates: start: 20170920
  2. XOLAIR [Suspect]
     Active Substance: OMALIZUMAB
     Indication: Idiopathic urticaria
     Dosage: 300 MG, QMO
     Route: 058
  3. LOSARTAN [Suspect]
     Active Substance: LOSARTAN
     Indication: Hypertension
     Dosage: 50 MG, Q12H (5 YEARS AGO APPROXIMATELY)
     Route: 048

REACTIONS (16)
  - Heavy menstrual bleeding [Unknown]
  - Menstruation irregular [Unknown]
  - Uterine polyp [Unknown]
  - Benign ear neoplasm [Unknown]
  - Deafness unilateral [Not Recovered/Not Resolved]
  - Balance disorder [Unknown]
  - Malaise [Unknown]
  - Dysuria [Unknown]
  - Haematinuria [Unknown]
  - Skin odour abnormal [Unknown]
  - Arthralgia [Unknown]
  - Urticaria [Unknown]
  - Pruritus [Not Recovered/Not Resolved]
  - Hypersensitivity [Not Recovered/Not Resolved]
  - Migraine [Unknown]
  - Drug ineffective [Unknown]

NARRATIVE: CASE EVENT DATE: 20180404
